FAERS Safety Report 6449082-6 (Version None)
Quarter: 2009Q4

REPORT INFORMATION
  Report Type: 
  Country: None (occurrence: None)
  Receive Date: 20091120
  Receipt Date: 20091112
  Transmission Date: 20100525
  Serious: Yes (Hospitalization, Other)
  Sender: FDA-Public Use
  Company Number: JP-JNJFOC-20091103944

PATIENT
  Sex: Male
  Weight: 99 kg

DRUGS (14)
  1. LEUSTATIN [Suspect]
     Route: 041
     Dates: start: 20050406, end: 20050728
  2. LEUSTATIN [Suspect]
     Route: 041
     Dates: start: 20050406, end: 20050728
  3. LEUSTATIN [Suspect]
     Route: 041
     Dates: start: 20050406, end: 20050728
  4. LEUSTATIN [Suspect]
     Indication: B-CELL LYMPHOMA
     Route: 041
     Dates: start: 20050406, end: 20050728
  5. ALKYLATING AGENTS [Suspect]
     Indication: LYMPHOMA
     Route: 065
  6. RITUXAN [Concomitant]
     Indication: B-CELL LYMPHOMA
     Route: 042
     Dates: start: 20050405, end: 20050727
  7. GRAN [Concomitant]
     Route: 058
     Dates: start: 20050413, end: 20050818
  8. GASTER D [Concomitant]
     Indication: PROPHYLAXIS AGAINST GASTROINTESTINAL ULCER
     Route: 048
     Dates: start: 20050406, end: 20050818
  9. BAKTAR [Concomitant]
     Indication: ANTIFUNGAL PROPHYLAXIS
     Route: 048
     Dates: start: 20050407, end: 20050818
  10. LOXONIN [Concomitant]
     Indication: PREMEDICATION
     Route: 048
     Dates: start: 20050405, end: 20050725
  11. POLARAMINE [Concomitant]
     Indication: PREMEDICATION
     Route: 048
     Dates: start: 20050405, end: 20050725
  12. MAGLAX [Concomitant]
     Indication: CONSTIPATION PROPHYLAXIS
     Route: 048
  13. PANTOSIN [Concomitant]
     Indication: CONSTIPATION PROPHYLAXIS
     Route: 048
     Dates: start: 20050408, end: 20050428
  14. CONTOMIN [Concomitant]
     Indication: PROPHYLAXIS
     Route: 048
     Dates: start: 20050527, end: 20050818

REACTIONS (2)
  - ACUTE MYELOID LEUKAEMIA [None]
  - WHITE BLOOD CELL COUNT DECREASED [None]
